FAERS Safety Report 5637216-2 (Version None)
Quarter: 2008Q1

REPORT INFORMATION
  Report Type: 
  Country: None (occurrence: None)
  Receive Date: 20080220
  Receipt Date: 20080220
  Transmission Date: 20080703
  Serious: Yes (Hospitalization)
  Sender: FDA-Public Use
  Company Number: None

PATIENT
  Age: 61 Year
  Sex: Male

DRUGS (1)
  1. CISPLATIN [Suspect]
     Dosage: 93
     Dates: start: 20061221, end: 20061222

REACTIONS (1)
  - BLOOD ELECTROLYTES ABNORMAL [None]
